FAERS Safety Report 13752498 (Version 3)
Quarter: 2018Q1

REPORT INFORMATION
  Report Type: Report from Study
  Country: US (occurrence: BR)
  Receive Date: 20170713
  Receipt Date: 20180109
  Transmission Date: 20180508
  Serious: Yes (Death, Hospitalization, Other)
  Sender: FDA-Public Use
  Company Number: US-SUNOVION-2017SUN002959

PATIENT
  Age: 64 Year
  Sex: Female
  Weight: 50 kg

DRUGS (2)
  1. INDACATEROL [Suspect]
     Active Substance: INDACATEROL
     Indication: RESPIRATORY DISORDER
     Dosage: UNK, REGIMEN #1
     Route: 055
     Dates: start: 201310
  2. INDACATEROL [Suspect]
     Active Substance: INDACATEROL
     Indication: EMPHYSEMA

REACTIONS (3)
  - Cardio-respiratory arrest [Fatal]
  - Infection [Fatal]
  - Emphysema [Fatal]

NARRATIVE: CASE EVENT DATE: 20161223
